FAERS Safety Report 16678686 (Version 1)
Quarter: 2019Q3

REPORT INFORMATION
  Report Type: Spontaneous
  Country: US (occurrence: US)
  Receive Date: 20190807
  Receipt Date: 20190807
  Transmission Date: 20191004
  Serious: No
  Sender: FDA-Public Use
  Company Number: US-TEVA-2019-US-1086578

PATIENT
  Sex: Female

DRUGS (1)
  1. CLARAVIS [Suspect]
     Active Substance: ISOTRETINOIN
     Indication: FOLLICULITIS
     Route: 065
     Dates: start: 20190718

REACTIONS (3)
  - Tenderness [Unknown]
  - Pruritus [Unknown]
  - Inflammation [Unknown]

NARRATIVE: CASE EVENT DATE: 20190718
